FAERS Safety Report 9935262 (Version 2)
Quarter: 2014Q1

REPORT INFORMATION
  Report Type: Report from Study
  Country: BE (occurrence: BE)
  Receive Date: 20140228
  Receipt Date: 20140228
  Transmission Date: 20141002
  Serious: Yes (Disabling)
  Sender: FDA-Public Use
  Company Number: BE-ABBVIE-13P-013-1177440-00

PATIENT
  Age: 38 Year
  Sex: Male
  Weight: 74 kg

DRUGS (4)
  1. HUMIRA [Suspect]
     Indication: PSORIASIS
     Dosage: LOADING DOSE: 80 MG
     Dates: start: 20121006, end: 20121006
  2. HUMIRA [Suspect]
     Dates: start: 20121013, end: 20130925
  3. BETASERC [Concomitant]
     Indication: PRODUCT USED FOR UNKNOWN INDICATION
  4. DOVOBET [Concomitant]
     Indication: PSORIASIS
     Dates: start: 201010

REACTIONS (2)
  - Meniere^s disease [Not Recovered/Not Resolved]
  - Injection site haematoma [Unknown]
